FAERS Safety Report 24538081 (Version 1)
Quarter: 2024Q4

REPORT INFORMATION
  Report Type: Spontaneous
  Country: US (occurrence: US)
  Receive Date: 20241023
  Receipt Date: 20241023
  Transmission Date: 20250115
  Serious: Yes (Other)
  Sender: ABBVIE
  Company Number: US-ABBVIE-5967664

PATIENT
  Age: 69 Year
  Sex: Female
  Weight: 46 kg

DRUGS (18)
  1. VENCLEXTA [Suspect]
     Active Substance: VENETOCLAX
     Indication: Product used for unknown indication
     Route: 048
     Dates: start: 20240805
  2. HYDROCHLOROTHIAZIDE [Concomitant]
     Active Substance: HYDROCHLOROTHIAZIDE
     Indication: Product used for unknown indication
  3. ALLEGRA ALLERGY [Concomitant]
     Active Substance: FEXOFENADINE HYDROCHLORIDE
     Indication: Product used for unknown indication
  4. CLOBETASOL PROPIONATE [Concomitant]
     Active Substance: CLOBETASOL PROPIONATE
     Indication: Product used for unknown indication
  5. IRON\VITAMINS [Concomitant]
     Active Substance: IRON\VITAMINS
     Indication: Product used for unknown indication
  6. IRON [Concomitant]
     Active Substance: IRON
     Indication: Product used for unknown indication
  7. BRUKINSA [Suspect]
     Active Substance: ZANUBRUTINIB
     Indication: B-cell small lymphocytic lymphoma
     Dosage: STRENGTH: 80 MG, FIRST AND LAST ADMIN DATE: 2024
     Route: 048
  8. BRUKINSA [Suspect]
     Active Substance: ZANUBRUTINIB
     Indication: B-cell small lymphocytic lymphoma
     Dosage: STRENGTH: 80 MG
     Route: 048
  9. BRUKINSA [Suspect]
     Active Substance: ZANUBRUTINIB
     Indication: B-cell small lymphocytic lymphoma
     Dosage: STRENGTH: 80 MG
     Route: 048
  10. BRUKINSA [Suspect]
     Active Substance: ZANUBRUTINIB
     Indication: B-cell small lymphocytic lymphoma
     Dosage: STRENGTH: 80 MG,
     Route: 048
     Dates: start: 20231002, end: 20240226
  11. BRUKINSA [Suspect]
     Active Substance: ZANUBRUTINIB
     Indication: B-cell small lymphocytic lymphoma
     Dosage: STRENGTH: 80 MG, LAST ADMIN DATE :2024
     Route: 048
     Dates: start: 20240305
  12. BRUKINSA [Suspect]
     Active Substance: ZANUBRUTINIB
     Indication: B-cell small lymphocytic lymphoma
     Dosage: STRENGTH: 80 MG,
     Route: 048
     Dates: start: 20240325
  13. LOSARTAN POTASSIUM [Concomitant]
     Active Substance: LOSARTAN POTASSIUM
     Indication: Product used for unknown indication
  14. ACYCLOVIR [Concomitant]
     Active Substance: ACYCLOVIR
     Indication: Product used for unknown indication
  15. ALLOPURINOL [Concomitant]
     Active Substance: ALLOPURINOL
     Indication: Product used for unknown indication
  16. FAMOTIDINE [Concomitant]
     Active Substance: FAMOTIDINE
     Indication: Product used for unknown indication
  17. IMITREX [Concomitant]
     Active Substance: SUMATRIPTAN SUCCINATE
     Indication: Product used for unknown indication
  18. SUMATRIPTAN [Concomitant]
     Active Substance: SUMATRIPTAN
     Indication: Product used for unknown indication

REACTIONS (7)
  - B-cell small lymphocytic lymphoma [Unknown]
  - Rash [Not Recovered/Not Resolved]
  - Alopecia [Recovering/Resolving]
  - Neutrophil count decreased [Recovering/Resolving]
  - SARS-CoV-2 test positive [Recovered/Resolved]
  - Nausea [Unknown]
  - Haemoglobin decreased [Unknown]

NARRATIVE: CASE EVENT DATE: 20231004
